FAERS Safety Report 12912009 (Version 1)
Quarter: 2016Q4

REPORT INFORMATION
  Report Type: Spontaneous
  Country: DE (occurrence: DE)
  Receive Date: 20161104
  Receipt Date: 20161104
  Transmission Date: 20170207
  Serious: Yes (Disabling)
  Sender: FDA-Public Use
  Company Number: DE-JNJFOC-20161026460

PATIENT
  Age: 79 Year
  Sex: Female
  Weight: 84 kg

DRUGS (5)
  1. EPLERENONE. [Concomitant]
     Active Substance: EPLERENONE
     Route: 048
     Dates: start: 20140528, end: 20140618
  2. DIOVAN [Concomitant]
     Active Substance: VALSARTAN
     Route: 048
     Dates: start: 20140528, end: 20140618
  3. ADUMBRAN [Concomitant]
     Route: 048
     Dates: start: 20140528, end: 20140618
  4. XARELTO [Suspect]
     Active Substance: RIVAROXABAN
     Indication: ATRIAL FIBRILLATION
     Route: 048
     Dates: start: 20140528, end: 20140618
  5. BISOPROLOL [Concomitant]
     Active Substance: BISOPROLOL
     Route: 048
     Dates: start: 20140528, end: 20140618

REACTIONS (4)
  - Cerebral ischaemia [Unknown]
  - Performance status decreased [Unknown]
  - Amaurosis fugax [Unknown]
  - Product use issue [Unknown]

NARRATIVE: CASE EVENT DATE: 201405
